FAERS Safety Report 5001543-2 (Version None)
Quarter: 2006Q2

REPORT INFORMATION
  Report Type: 
  Country: None (occurrence: None)
  Receive Date: 20060511
  Receipt Date: 20060424
  Transmission Date: 20061013
  Serious: Yes (Other)
  Sender: FDA-Public Use
  Company Number: DSA_70902_2006

PATIENT
  Age: 63 Year
  Sex: Male

DRUGS (2)
  1. AZATHIOPRINE [Suspect]
     Indication: VASCULITIS
     Dosage: 150 MG QDAY
  2. PREDNISONE TAB [Concomitant]

REACTIONS (3)
  - BLOOD CREATINE INCREASED [None]
  - DRUG HYPERSENSITIVITY [None]
  - NEPHRITIS INTERSTITIAL [None]
